FAERS Safety Report 24220952 (Version 1)
Quarter: 2024Q3

REPORT INFORMATION
  Report Type: Other
  Country: FR (occurrence: FR)
  Receive Date: 20240819
  Receipt Date: 20240819
  Transmission Date: 20241017
  Serious: Yes (Hospitalization)
  Sender: IBSA INSTITUT BIOCHIMIQUE
  Company Number: FR-IBSA PHARMA INC.-2024IBS000372

PATIENT
  Age: 71 Year
  Sex: Female
  Weight: 94 kg

DRUGS (4)
  1. DICLOFENAC [Suspect]
     Active Substance: DICLOFENAC
     Indication: Product used for unknown indication
     Dosage: 3 DOSAGE FORM, QD
     Route: 003
     Dates: start: 2024, end: 2024
  2. DICLOFENAC [Suspect]
     Active Substance: DICLOFENAC
     Dosage: 3 DOSAGE FORM, QD
     Route: 003
     Dates: start: 20240701, end: 2024
  3. PINAVERIUM BROMIDE [Suspect]
     Active Substance: PINAVERIUM BROMIDE
     Indication: Product used for unknown indication
     Dosage: 100 MILLIGRAM, Q8H
     Route: 048
     Dates: start: 2024, end: 2024
  4. PINAVERIUM BROMIDE [Suspect]
     Active Substance: PINAVERIUM BROMIDE
     Dosage: 100 MILLIGRAM, Q8H
     Route: 048
     Dates: start: 20240701, end: 2024

REACTIONS (1)
  - Thrombocytopenia [Recovering/Resolving]

NARRATIVE: CASE EVENT DATE: 20240624
